FAERS Safety Report 14784784 (Version 1)
Quarter: 2018Q2

REPORT INFORMATION
  Report Type: Spontaneous
  Country: IS (occurrence: IS)
  Receive Date: 20180420
  Receipt Date: 20180420
  Transmission Date: 20180711
  Serious: Yes (Hospitalization)
  Sender: FDA-Public Use
  Company Number: IS-TEVA-2018-IS-880705

PATIENT
  Age: 70 Year
  Sex: Male
  Weight: 117.5 kg

DRUGS (2)
  1. STAKLOX [Suspect]
     Active Substance: DICLOXACILLIN
     Indication: SKIN INFECTION
     Dosage: 1GX3
     Route: 065
     Dates: start: 20180109, end: 20180112
  2. CLOXACILLIN VILLERTON 1G STUNGULYFS-/INNRENNSLISSTOFN [Suspect]
     Active Substance: CLOXACILLIN SODIUM
     Indication: SKIN INFECTION
     Dosage: 2GX4
     Route: 042
     Dates: start: 20180131, end: 20180131

REACTIONS (2)
  - Acute kidney injury [Recovering/Resolving]
  - Tubulointerstitial nephritis [Recovering/Resolving]

NARRATIVE: CASE EVENT DATE: 20180131
